FAERS Safety Report 11098889 (Version 1)
Quarter: 2015Q2

REPORT INFORMATION
  Report Type: Spontaneous
  Country: US (occurrence: US)
  Receive Date: 20150508
  Receipt Date: 20150508
  Transmission Date: 20150821
  Serious: Yes (Other)
  Sender: FDA-Public Use
  Company Number: US-PFIZER INC-2015151527

PATIENT
  Age: 65 Year
  Sex: Female
  Weight: 73.16 kg

DRUGS (2)
  1. NEURONTIN [Suspect]
     Active Substance: GABAPENTIN
     Dosage: 300 MG, UNK
  2. XELODA [Concomitant]
     Active Substance: CAPECITABINE

REACTIONS (8)
  - Crying [Unknown]
  - Radicular pain [Unknown]
  - Joint range of motion decreased [Unknown]
  - Pain [Unknown]
  - Bone disorder [Unknown]
  - Chondropathy [Unknown]
  - Emotional distress [Unknown]
  - Breast cancer [Unknown]
